FAERS Safety Report 21306018 (Version 4)
Quarter: 2023Q1

REPORT INFORMATION
  Report Type: Report from Study
  Country: CA (occurrence: CA)
  Receive Date: 20220908
  Receipt Date: 20230315
  Transmission Date: 20230418
  Serious: No
  Sender: FDA-Public Use
  Company Number: CA-NOVARTISPH-NVSC2022CA200665

PATIENT
  Age: 59 Year
  Sex: Male
  Weight: 158 kg

DRUGS (2)
  1. HYRIMOZ [Suspect]
     Active Substance: ADALIMUMAB-ADAZ
     Indication: Crohn^s disease
     Dosage: 40 MG, Q2W (INJECTIONS EVERY SECOND MONDAY)
     Route: 058
     Dates: start: 20220613
  2. HYRIMOZ [Suspect]
     Active Substance: ADALIMUMAB-ADAZ
     Dosage: 40 MG, QW
     Route: 058

REACTIONS (3)
  - Gastrointestinal inflammation [Unknown]
  - Diarrhoea [Unknown]
  - Muscle spasms [Unknown]
